FAERS Safety Report 9198818 (Version 6)
Quarter: 2014Q4

REPORT INFORMATION
  Report Type: Spontaneous
  Country: US (occurrence: US)
  Receive Date: 20130329
  Receipt Date: 20141010
  Transmission Date: 20150529
  Serious: Yes (Hospitalization)
  Sender: FDA-Public Use
  Company Number: US-009507513-1303USA011379

PATIENT
  Sex: Male
  Weight: 132.88 kg

DRUGS (1)
  1. PROPECIA [Suspect]
     Active Substance: FINASTERIDE
     Indication: ANDROGENETIC ALOPECIA
     Dosage: UNK
     Route: 048
     Dates: start: 1998, end: 2001

REACTIONS (48)
  - Deep vein thrombosis [Unknown]
  - Hypergonadism [Unknown]
  - Orchitis [Unknown]
  - Orchitis noninfective [Unknown]
  - Haemangioma [Unknown]
  - Diabetes mellitus inadequate control [Not Recovered/Not Resolved]
  - Nasal septum deviation [Not Recovered/Not Resolved]
  - Gastrooesophageal reflux disease [Unknown]
  - Depression [Not Recovered/Not Resolved]
  - Semen volume decreased [Not Recovered/Not Resolved]
  - Cardiac ablation [Unknown]
  - Dyspnoea [Unknown]
  - Goitre [Unknown]
  - Back pain [Unknown]
  - Penile size reduced [Unknown]
  - Infertility [Unknown]
  - Anxiety [Not Recovered/Not Resolved]
  - Phimosis [Unknown]
  - Metabolic syndrome [Unknown]
  - Hypogonadism male [Unknown]
  - Thyroid function test abnormal [Unknown]
  - Hyperlipidaemia [Unknown]
  - Nervous system disorder [Unknown]
  - Drug ineffective [Unknown]
  - Testicular mass [Unknown]
  - Epididymal cyst [Unknown]
  - Thyroid mass [Unknown]
  - Sexual dysfunction [Unknown]
  - Cardiac flutter [Unknown]
  - Androgen deficiency [Unknown]
  - Benign neoplasm of thyroid gland [Unknown]
  - Hypothyroidism [Not Recovered/Not Resolved]
  - Benign prostatic hyperplasia [Unknown]
  - Genital tract inflammation [Unknown]
  - Testicular atrophy [Unknown]
  - Essential hypertension [Not Recovered/Not Resolved]
  - Asthma [Unknown]
  - Varicocele [Unknown]
  - Arthralgia [Unknown]
  - Myalgia [Unknown]
  - Constipation [Unknown]
  - Weight increased [Unknown]
  - Fatigue [Unknown]
  - Thrombosis [Unknown]
  - Loss of libido [Not Recovered/Not Resolved]
  - Erectile dysfunction [Not Recovered/Not Resolved]
  - Atrial fibrillation [Unknown]
  - Glucose tolerance test abnormal [Unknown]

NARRATIVE: CASE EVENT DATE: 1998
